FAERS Safety Report 9952729 (Version 1)
Quarter: 2014Q1

REPORT INFORMATION
  Report Type: Spontaneous
  Country: US (occurrence: US)
  Receive Date: 20140304
  Receipt Date: 20140304
  Transmission Date: 20141002
  Serious: Yes (Other)
  Sender: FDA-Public Use
  Company Number: US-PFIZER INC-2014057775

PATIENT
  Age: 62 Year
  Sex: Female
  Weight: 70.3 kg

DRUGS (10)
  1. ENBREL [Suspect]
     Indication: ANKYLOSING SPONDYLITIS
     Dosage: UNK
     Route: 065
     Dates: start: 2006, end: 2013
  2. FLUCONAZOLE [Suspect]
     Dosage: UNK
  3. HUMIRA [Suspect]
     Dosage: UNK
  4. ARMOUR THYROID [Concomitant]
     Indication: THYROID DISORDER
     Dosage: UNK
  5. OMEGA 3 [Concomitant]
     Dosage: UNK
  6. VITAMIN B COMPLEX [Concomitant]
     Dosage: UNK
  7. ZINC [Concomitant]
     Dosage: UNK
  8. VITAMIN D3 [Concomitant]
     Dosage: UNK
  9. VITAMIN C [Concomitant]
     Dosage: UNK
  10. BETA CAROTENE [Concomitant]
     Dosage: UNK

REACTIONS (4)
  - Mental impairment [Unknown]
  - Uveitis [Unknown]
  - Arthralgia [Unknown]
  - Feeling abnormal [Unknown]
